FAERS Safety Report 4281418-7 (Version None)
Quarter: 2004Q1

REPORT INFORMATION
  Report Type: 
  Country: None (occurrence: None)
  Receive Date: 20040109
  Receipt Date: 20030825
  Transmission Date: 20041129
  Serious: Yes (Other)
  Sender: FDA-Public Use
  Company Number: HQWYE362626AUG03

PATIENT
  Age: 44 Year
  Sex: Female
  Weight: 53.57 kg

DRUGS (1)
  1. PREMPRO [Suspect]
     Indication: MENORRHAGIA
     Dosage: 0.625MG/2.5MG DAILY, ORAL
     Route: 048
     Dates: start: 20010501, end: 20020518

REACTIONS (4)
  - ASTHENIA [None]
  - BLOOD GLUCOSE INCREASED [None]
  - VISUAL ACUITY REDUCED [None]
  - WEIGHT DECREASED [None]
